FAERS Safety Report 25871767 (Version 4)
Quarter: 2025Q4

REPORT INFORMATION
  Report Type: Spontaneous
  Country: EG (occurrence: EG)
  Receive Date: 20251001
  Receipt Date: 20251203
  Transmission Date: 20260117
  Serious: Yes (Other)
  Sender: HETERO
  Company Number: EG-AMAROX PHARMA-HET2025EG05797

PATIENT
  Age: 23 Year
  Sex: Male
  Weight: 77 kg

DRUGS (2)
  1. FINGOLIMOD [Suspect]
     Active Substance: FINGOLIMOD
     Indication: Multiple sclerosis
     Dosage: 1 DOSAGE FORM EVERY OTHER DAY
     Route: 048
     Dates: start: 20250216
  2. URSOPLUS [Concomitant]
     Indication: Hepatic enzyme increased
     Dosage: UNK
     Route: 065

REACTIONS (4)
  - Angina pectoris [Recovering/Resolving]
  - Hepatic enzyme increased [Not Recovered/Not Resolved]
  - Memory impairment [Unknown]
  - Off label use [Unknown]

NARRATIVE: CASE EVENT DATE: 20250201
